FAERS Safety Report 15990451 (Version 3)
Quarter: 2019Q1

REPORT INFORMATION
  Report Type: Spontaneous
  Country: IT (occurrence: IT)
  Receive Date: 20190221
  Receipt Date: 20190315
  Transmission Date: 20190418
  Serious: Yes (Other)
  Sender: FDA-Public Use
  Company Number: PHHY2019IT040268

PATIENT
  Age: 18 Year
  Sex: Female

DRUGS (1)
  1. PARACETAMOL [Suspect]
     Active Substance: ACETAMINOPHEN
     Indication: HEADACHE
     Dosage: 9 G, TOTAL
     Route: 048
     Dates: start: 20180615

REACTIONS (4)
  - Drug abuse [Recovering/Resolving]
  - Intentional overdose [Unknown]
  - Nausea [Recovering/Resolving]
  - Abdominal pain [Recovering/Resolving]

NARRATIVE: CASE EVENT DATE: 20180615
